FAERS Safety Report 13402072 (Version 2)
Quarter: 2017Q2

REPORT INFORMATION
  Report Type: Spontaneous
  Country: DE (occurrence: DE)
  Receive Date: 20170404
  Receipt Date: 20170413
  Transmission Date: 20170830
  Serious: Yes (Other)
  Sender: FDA-Public Use
  Company Number: DE-SHIRE-DE201707317

PATIENT
  Sex: Female

DRUGS (1)
  1. MEZAVANT [Suspect]
     Active Substance: MESALAMINE
     Indication: PRODUCT USED FOR UNKNOWN INDICATION
     Dosage: UNK, UNKNOWN
     Route: 065

REACTIONS (5)
  - Asthma [Not Recovered/Not Resolved]
  - Pneumonia [Unknown]
  - Alopecia [Unknown]
  - Generalised oedema [Unknown]
  - Pneumonitis [Unknown]

NARRATIVE: CASE EVENT DATE: 2017
